FAERS Safety Report 5409029-8 (Version None)
Quarter: 2007Q3

REPORT INFORMATION
  Report Type: 
  Country: None (occurrence: None)
  Receive Date: 20070808
  Receipt Date: 20070803
  Transmission Date: 20080115
  Serious: Yes (Other)
  Sender: FDA-Public Use
  Company Number: US-GENENTECH-243021

PATIENT
  Sex: Male
  Weight: 47.619 kg

DRUGS (2)
  1. NUTROPIN AQ [Suspect]
     Indication: RENAL FAILURE CHRONIC
     Dates: start: 19970501, end: 20041101
  2. CONCOMITANT DRUGS [Concomitant]
     Indication: RENAL FAILURE CHRONIC

REACTIONS (1)
  - HEPATIC NEOPLASM MALIGNANT [None]
